FAERS Safety Report 7685463-0 (Version None)
Quarter: 2011Q3

REPORT INFORMATION
  Report Type: 
  Country: None (occurrence: None)
  Receive Date: 20110816
  Receipt Date: 20110803
  Transmission Date: 20111222
  Serious: Yes (Hospitalization)
  Sender: FDA-Public Use
  Company Number: DE-CELGENEUS-062-21880-08100448

PATIENT
  Age: 71 Year
  Sex: Female
  Weight: 68 kg

DRUGS (3)
  1. SANDIMMUNE [Concomitant]
     Indication: PROPHYLAXIS AGAINST GRAFT VERSUS HOST DISEASE
     Dosage: 100 MILLIGRAM
     Route: 048
     Dates: start: 20080719, end: 20080921
  2. REVLIMID [Suspect]
     Dosage: DAYS 1-21 OUT OF 28-DAY CYCLE
     Route: 048
     Dates: start: 20080901, end: 20080922
  3. BETAMETHASON SALBE [Concomitant]
     Route: 061
     Dates: start: 20080913

REACTIONS (2)
  - ACUTE GRAFT VERSUS HOST DISEASE IN SKIN [None]
  - ACUTE GRAFT VERSUS HOST DISEASE IN INTESTINE [None]
